FAERS Safety Report 6252066-4 (Version None)
Quarter: 2009Q2

REPORT INFORMATION
  Report Type: 
  Country: None (occurrence: None)
  Receive Date: 20090629
  Receipt Date: 20090608
  Transmission Date: 20091009
  Serious: Yes (Other)
  Sender: FDA-Public Use
  Company Number: 001092

PATIENT
  Age: 75 Year
  Sex: Male

DRUGS (1)
  1. NEUPRO [Suspect]
     Dosage: (TRANSDERMAL), (2 MG TRANSDERMAL)
     Route: 062
     Dates: start: 20080301

REACTIONS (3)
  - APPLICATION SITE IRRITATION [None]
  - APPLICATION SITE RASH [None]
  - PRODUCT QUALITY ISSUE [None]
